FAERS Safety Report 9835689 (Version 2)
Quarter: 2014Q1

REPORT INFORMATION
  Report Type: Spontaneous
  Country: US (occurrence: US)
  Receive Date: 20140122
  Receipt Date: 20140213
  Transmission Date: 20141002
  Serious: Yes (Death, Other)
  Sender: FDA-Public Use
  Company Number: US-INCYTE CORPORATION-2014IN000126

PATIENT
  Sex: Female
  Weight: 55.78 kg

DRUGS (1)
  1. JAKAFI [Suspect]
     Indication: MYELOFIBROSIS
     Dosage: 10 MG, BID
     Route: 048
     Dates: start: 201201

REACTIONS (4)
  - Pneumonia [Fatal]
  - Septic shock [Fatal]
  - Respiratory failure [Fatal]
  - Clostridium difficile colitis [Unknown]
